FAERS Safety Report 11677687 (Version 2)
Quarter: 2015Q4

REPORT INFORMATION
  Report Type: Report from Study
  Country: AU (occurrence: AU)
  Receive Date: 20151028
  Receipt Date: 20151203
  Transmission Date: 20160304
  Serious: Yes (Death, Hospitalization, Other)
  Sender: FDA-Public Use
  Company Number: AU-GILEAD-2015-0174801

PATIENT
  Age: 55 Year
  Sex: Male

DRUGS (4)
  1. DACLATASVIR. [Concomitant]
     Active Substance: DACLATASVIR
     Indication: CHRONIC HEPATITIS C
     Dosage: 60 MG, UNK
     Route: 048
     Dates: start: 20150501, end: 20151007
  2. RIFAXIMIN [Concomitant]
     Active Substance: RIFAXIMIN
     Dosage: UNK
     Dates: start: 201503
  3. SOFOSBUVIR [Suspect]
     Active Substance: SOFOSBUVIR
     Indication: CHRONIC HEPATITIS C
     Dosage: 400 MG, UNK
     Route: 048
     Dates: start: 20150501, end: 20151007
  4. LACTULOSE. [Concomitant]
     Active Substance: LACTULOSE
     Dosage: UNK
     Dates: start: 201503

REACTIONS (4)
  - Respiratory failure [Unknown]
  - Hepatic cirrhosis [Fatal]
  - Pulmonary fibrosis [Fatal]
  - Cholecystitis [Unknown]

NARRATIVE: CASE EVENT DATE: 2015
